FAERS Safety Report 25192366 (Version 3)
Quarter: 2025Q2

REPORT INFORMATION
  Report Type: Report from Study
  Country: FR (occurrence: FR)
  Receive Date: 20250414
  Receipt Date: 20250623
  Transmission Date: 20250717
  Serious: Yes (Other)
  Sender: AMGEN
  Company Number: FR-AMGEN-FRANI2025071318

PATIENT

DRUGS (2)
  1. TEPROTUMUMAB [Suspect]
     Active Substance: TEPROTUMUMAB
     Indication: Product used for unknown indication
     Route: 065
     Dates: start: 2024
  2. TEPROTUMUMAB [Suspect]
     Active Substance: TEPROTUMUMAB
     Route: 065

REACTIONS (7)
  - Hyperthyroidism [Unknown]
  - Blood thyroid stimulating hormone abnormal [Unknown]
  - Thyroid stimulating immunoglobulin [Unknown]
  - Thyroxine abnormal [Unknown]
  - Blood glucose abnormal [Unknown]
  - Tri-iodothyronine abnormal [Unknown]
  - Off label use [Unknown]

NARRATIVE: CASE EVENT DATE: 20240101
